FAERS Safety Report 8563422 (Version 4)
Quarter: 2012Q4

REPORT INFORMATION
  Report Type: 
  Country: DE (occurrence: DE)
  Receive Date: 20120515
  Receipt Date: 20120921
  Transmission Date: 20130627
  Serious: Yes (Life-Threatening, Hospitalization)
  Sender: FDA-Public Use
  Company Number: PHHY2012DE039776

PATIENT
  Age: 33 Year
  Sex: Female

DRUGS (2)
  1. GILENYA [Suspect]
     Indication: PROGRESSIVE MULTIPLE SCLEROSIS
     Dosage: 0.5 mg, QD
     Route: 048
     Dates: start: 20120503, end: 20120505
  2. CONTRACEPTIVES [Concomitant]
     Dosage: UNK UKN, UNK
     Route: 048

REACTIONS (13)
  - Respiratory disorder [Recovering/Resolving]
  - Dyspnoea [Recovering/Resolving]
  - Pulmonary oedema [Recovering/Resolving]
  - Chest pain [Recovering/Resolving]
  - Headache [Recovering/Resolving]
  - Pneumonia [Recovering/Resolving]
  - C-reactive protein increased [Recovering/Resolving]
  - Ventricular hyperkinesia [Recovering/Resolving]
  - Troponin increased [Recovering/Resolving]
  - Myoglobin blood increased [Recovering/Resolving]
  - General physical health deterioration [None]
  - Lung infiltration [None]
  - Infection [None]
